FAERS Safety Report 10586895 (Version 2)
Quarter: 2014Q4

REPORT INFORMATION
  Report Type: Spontaneous
  Country: US (occurrence: US)
  Receive Date: 20141117
  Receipt Date: 20141117
  Transmission Date: 20150529
  Serious: Yes (Other)
  Sender: FDA-Public Use
  Company Number: US-CELGENE-163-21880-12041295

PATIENT
  Sex: Male
  Weight: 86.26 kg

DRUGS (9)
  1. REVLIMID [Suspect]
     Active Substance: LENALIDOMIDE
     Indication: PLASMA CELL MYELOMA
     Dosage: 15 MILLIGRAM
     Route: 048
     Dates: start: 20120314
  2. ECOTRIN [Concomitant]
     Active Substance: ASPIRIN
     Indication: INFECTION
     Route: 065
  3. PRESERVISION [Concomitant]
     Indication: INFECTION
     Route: 065
  4. CALCIUM [Concomitant]
     Active Substance: CALCIUM
     Indication: INFECTION
     Route: 065
  5. CEFDINIR. [Concomitant]
     Active Substance: CEFDINIR
     Indication: INFECTION
     Route: 065
  6. CITRUCEL [Concomitant]
     Active Substance: METHYLCELLULOSE (4000 MPA.S)
     Indication: INFECTION
     Route: 065
  7. MULTIVITAMINS [Concomitant]
     Active Substance: VITAMINS
     Indication: INFECTION
     Route: 065
  8. GLUCOSAMINE-CHONDROTIN [Concomitant]
     Indication: INFECTION
     Route: 065
  9. ZOMETA [Concomitant]
     Active Substance: ZOLEDRONIC ACID
     Indication: INFECTION
     Route: 065

REACTIONS (1)
  - Osteonecrosis [Unknown]
